FAERS Safety Report 23726243 (Version 1)
Quarter: 2024Q2

REPORT INFORMATION
  Report Type: Spontaneous
  Country: US (occurrence: US)
  Receive Date: 20240410
  Receipt Date: 20240410
  Transmission Date: 20240716
  Serious: No
  Sender: FDA-Public Use
  Company Number: US-862174955-ML2024-01995

PATIENT
  Sex: Female

DRUGS (1)
  1. DALFAMPRIDINE [Suspect]
     Active Substance: DALFAMPRIDINE
     Indication: Product used for unknown indication
     Dosage: TWO TABLETS ONE AT 7 IN THE MORNING AND THE OTHER AT 7 IN THE EVENING
     Route: 048
     Dates: start: 20240321

REACTIONS (4)
  - Dizziness [Unknown]
  - Nausea [Unknown]
  - Malaise [Unknown]
  - Gait disturbance [Unknown]
